FAERS Safety Report 20643462 (Version 2)
Quarter: 2022Q1

REPORT INFORMATION
  Report Type: Report from Study
  Country: US (occurrence: US)
  Receive Date: 20220328
  Receipt Date: 20220331
  Transmission Date: 20220423
  Serious: Yes (Death, Hospitalization)
  Sender: FDA-Public Use
  Company Number: US-EXELIXIS-CABO-22050250

PATIENT
  Age: 75 Year
  Sex: Male

DRUGS (1)
  1. CABOMETYX [Suspect]
     Active Substance: CABOZANTINIB S-MALATE
     Indication: Renal cancer
     Dosage: 60 MG, QD
     Route: 048
     Dates: start: 20220315

REACTIONS (10)
  - Localised oedema [Unknown]
  - Oedema peripheral [Unknown]
  - Death [Fatal]
  - Delirium [Unknown]
  - Oropharyngeal discomfort [Unknown]
  - Bedridden [Unknown]
  - Confusional state [Unknown]
  - Musculoskeletal discomfort [Unknown]
  - Cancer pain [Unknown]
  - Malignant neoplasm progression [Unknown]

NARRATIVE: CASE EVENT DATE: 20220315
